FAERS Safety Report 12732909 (Version 1)
Quarter: 2016Q3

REPORT INFORMATION
  Report Type: Other
  Country: US (occurrence: US)
  Receive Date: 20160912
  Receipt Date: 20160912
  Transmission Date: 20161109
  Serious: Yes (Hospitalization)
  Sender: FDA-Public Use
  Company Number: US-FRI-1000086851

PATIENT
  Age: 65 Year
  Sex: Female

DRUGS (11)
  1. OMEPRAZOLE. [Concomitant]
     Active Substance: OMEPRAZOLE
  2. CICLESONIDE [Concomitant]
     Active Substance: CICLESONIDE
     Route: 055
  3. SUCRALFATE. [Concomitant]
     Active Substance: SUCRALFATE
  4. BYSTOLIC [Suspect]
     Active Substance: NEBIVOLOL HYDROCHLORIDE
  5. ALBUTEROL. [Concomitant]
     Active Substance: ALBUTEROL
     Route: 055
  6. SOLIFENACIN SUCCINATE. [Concomitant]
     Active Substance: SOLIFENACIN SUCCINATE
  7. PHENAZOPYRIDINE. [Concomitant]
     Active Substance: PHENAZOPYRIDINE
  8. SALMETEROL [Concomitant]
     Active Substance: SALMETEROL
     Route: 055
  9. HYDROCODONE-ACETAMINOPHENB [Concomitant]
     Dosage: 5-325 MG
  10. MULTIVITAMINS [Concomitant]
     Active Substance: VITAMINS
  11. THEOPHYLINE [Concomitant]
     Active Substance: THEOPHYLLINE ANHYDROUS

REACTIONS (1)
  - Eosinophilic cystitis [Recovered/Resolved]
